FAERS Safety Report 17171079 (Version 1)
Quarter: 2019Q4

REPORT INFORMATION
  Report Type: Report from Study
  Country: US (occurrence: US)
  Receive Date: 20191218
  Receipt Date: 20191218
  Transmission Date: 20200122
  Serious: No
  Sender: FDA-Public Use
  Company Number: NVSC2019US068874

PATIENT
  Sex: Male

DRUGS (2)
  1. ENTRESTO [Suspect]
     Active Substance: SACUBITRIL\VALSARTAN
     Indication: CARDIAC FAILURE
     Dosage: 100 MG(49 MG  SACUBITRIL/ 51MG VALSARTAN)
     Route: 065
  2. ENTRESTO [Suspect]
     Active Substance: SACUBITRIL\VALSARTAN
     Dosage: 50 MG(24MG SACUBITRIL/ 26MG VALSARTAN)
     Route: 065

REACTIONS (4)
  - Myalgia [Unknown]
  - Dizziness [Unknown]
  - Asthenia [Unknown]
  - Feeling abnormal [Unknown]
